FAERS Safety Report 5860143-2 (Version None)
Quarter: 2008Q3

REPORT INFORMATION
  Report Type: 
  Country: None (occurrence: None)
  Receive Date: 20080818
  Receipt Date: 20080513
  Transmission Date: 20090109
  Serious: No
  Sender: FDA-Public Use
  Company Number: WAES 0805USA02876

PATIENT
  Age: 74 Year
  Sex: Female

DRUGS (2)
  1. JANUVIA [Suspect]
     Indication: BLOOD GLUCOSE
     Dosage: 100 MG/DAILY/PO
     Route: 048
     Dates: start: 20080301
  2. GLUCOVANCE [Concomitant]

REACTIONS (2)
  - OROPHARYNGEAL BLISTERING [None]
  - STOMATITIS [None]
